FAERS Safety Report 9168900 (Version 1)
Quarter: 2013Q1

REPORT INFORMATION
  Report Type: Spontaneous
  Country: IT (occurrence: None)
  Receive Date: 20130307
  Receipt Date: 20130307
  Transmission Date: 20140127
  Serious: Yes (Hospitalization, Other)
  Sender: FDA-Public Use
  Company Number: GER/ITL/13/0028302

PATIENT
  Age: 37 Year
  Sex: Female

DRUGS (5)
  1. OLANZAPINE (OLANZAPINE) [Suspect]
     Indication: PRODUCT USED FOR UNKNOWN INDICATION
     Dosage: 10 DOSAGE FORMS, 1 IN 1 TOTAL, ORAL
     Route: 048
     Dates: start: 20130225, end: 20130225
  2. MIRTAZAPINE (MIRTAZAPINE) [Suspect]
     Indication: PRODUCT USED FOR UNKNOWN INDICATION
     Dosage: 15 DOSAGE FORMS, 1 IN 1 TOTAL, ORAL
     Route: 048
     Dates: start: 20130225, end: 20130225
  3. TEGRETOL (CARBAMAZEPINE) UNKNOWN [Suspect]
     Indication: PRODUCT USED FOR UNKNOWN INDICATION
     Dosage: 6 DOSAGE FORMS, 1 IN 1 TOTAL, ORAL
     Route: 048
     Dates: start: 20130225, end: 20130225
  4. RISPERDAL (RISPERIDONE) [Concomitant]
  5. AMISULPRIDE (AMISULPRIDE) [Concomitant]

REACTIONS (5)
  - Intentional overdose [None]
  - Intentional self-injury [None]
  - Somnolence [None]
  - Confusional state [None]
  - Drug abuse [None]
